FAERS Safety Report 5505194-2 (Version None)
Quarter: 2007Q4

REPORT INFORMATION
  Report Type: 
  Country: None (occurrence: None)
  Receive Date: 20071102
  Receipt Date: 20071019
  Transmission Date: 20080405
  Serious: Yes (Other)
  Sender: FDA-Public Use
  Company Number: US-ASTRAZENECA-2007UW23893

PATIENT
  Age: 42 Year
  Sex: Male
  Weight: 109.1 kg

DRUGS (4)
  1. SEROQUEL [Suspect]
     Indication: ANXIETY
     Dosage: 900 MG TO 1200 MG
     Route: 048
     Dates: start: 19980101, end: 20050101
  2. SEROQUEL [Suspect]
     Dosage: 900 MG TO 1200 MG
     Route: 048
     Dates: start: 19980101, end: 20050101
  3. RISPERDAL [Concomitant]
  4. ABILIFY [Concomitant]

REACTIONS (3)
  - CORONARY ARTERY DISEASE [None]
  - DIABETES MELLITUS [None]
  - PANCREATITIS [None]
